FAERS Safety Report 9466026 (Version 1)
Quarter: 2013Q3

REPORT INFORMATION
  Report Type: Spontaneous
  Country: AU (occurrence: AU)
  Receive Date: 20130820
  Receipt Date: 20130820
  Transmission Date: 20140515
  Serious: Yes (Hospitalization)
  Sender: FDA-Public Use
  Company Number: AU-SANOFI-AVENTIS-2013SA080765

PATIENT
  Age: 67 Year
  Sex: Male

DRUGS (17)
  1. TAXOTERE [Suspect]
     Indication: PRODUCT USED FOR UNKNOWN INDICATION
     Route: 065
     Dates: start: 20130412, end: 20130412
  2. TAXOTERE [Suspect]
     Indication: PRODUCT USED FOR UNKNOWN INDICATION
     Route: 065
     Dates: start: 20130320, end: 20130320
  3. ASPIRIN [Concomitant]
  4. DOCUSATE SODIUM\SENNOSIDES [Concomitant]
  5. DEXAMETHASONE [Concomitant]
  6. MIRTAZAPINE [Concomitant]
  7. NAPROXEN [Concomitant]
  8. OXAZEPAM [Concomitant]
  9. OXYCODONE HYDROCHLORIDE [Concomitant]
  10. PANADOL OSTEO [Concomitant]
  11. PANTOPRAZOLE [Concomitant]
  12. PREDNISOLONE [Concomitant]
  13. PREGABALIN [Concomitant]
  14. TARGIN [Concomitant]
     Dosage: STRENGTH: 10/5MG
  15. TEMAZEPAM [Concomitant]
  16. DOXYCYCLINE [Concomitant]
     Dates: end: 20130424
  17. VYTORIN [Concomitant]
     Dosage: STRENGTH: 10/80

REACTIONS (4)
  - Dyspnoea [Recovering/Resolving]
  - Oxygen saturation decreased [Recovering/Resolving]
  - Fatigue [Recovering/Resolving]
  - Interstitial lung disease [Recovering/Resolving]
